FAERS Safety Report 23700149 (Version 1)
Quarter: 2024Q2

REPORT INFORMATION
  Report Type: Spontaneous
  Country: CN (occurrence: CN)
  Receive Date: 20240403
  Receipt Date: 20240403
  Transmission Date: 20240715
  Serious: Yes (Other)
  Sender: FDA-Public Use
  Company Number: CN-AMGEN-CHNSP2024065016

PATIENT
  Age: 69 Year
  Sex: Male

DRUGS (2)
  1. REPATHA [Suspect]
     Active Substance: EVOLOCUMAB
     Indication: Drug therapy
     Dosage: 140 MILLIGRAM [FREQUENCY 1, DURATION OF REGIMEN 14
     Route: 058
     Dates: start: 20231116, end: 20240220
  2. REPATHA [Suspect]
     Active Substance: EVOLOCUMAB
     Indication: Lipids increased

REACTIONS (2)
  - Erythema [Recovered/Resolved]
  - Swelling [Recovered/Resolved]

NARRATIVE: CASE EVENT DATE: 20240213
